FAERS Safety Report 5944235-5 (Version None)
Quarter: 2008Q4

REPORT INFORMATION
  Report Type: 
  Country: None (occurrence: None)
  Receive Date: 20081104
  Receipt Date: 20081021
  Transmission Date: 20090506
  Serious: Yes (Hospitalization)
  Sender: FDA-Public Use
  Company Number: 2008AL009862

PATIENT
  Age: 66 Year
  Sex: Female

DRUGS (14)
  1. DIGOXIN [Suspect]
     Indication: ATRIAL FIBRILLATION
     Dosage: 0.125 MG, DAILY, PO
     Route: 048
  2. LEVOTHYROXINE SODIUM [Concomitant]
  3. ZOLOFT [Concomitant]
  4. WARFARIN SODIUM [Concomitant]
  5. NITROGLYCERIN [Concomitant]
  6. SYNTHROID [Concomitant]
  7. LISINOPRIL [Concomitant]
  8. ASPIRIN [Concomitant]
  9. METOPROLOL TARTRATE [Concomitant]
  10. VICONDIN [Concomitant]
  11. VITAMIN D [Concomitant]
  12. EVISTA [Concomitant]
  13. TYLENOL (CAPLET) [Concomitant]
  14. FLEXERIL [Concomitant]

REACTIONS (12)
  - ANAEMIA [None]
  - BACK PAIN [None]
  - CARDIAC DISORDER [None]
  - CARDIOACTIVE DRUG LEVEL INCREASED [None]
  - DIZZINESS [None]
  - DYSPNOEA [None]
  - EAR PAIN [None]
  - GASTROINTESTINAL HAEMORRHAGE [None]
  - HEART RATE IRREGULAR [None]
  - MUSCULOSKELETAL PAIN [None]
  - NAUSEA [None]
  - SYNCOPE [None]
